FAERS Safety Report 4451559-X (Version None)
Quarter: 2004Q3

REPORT INFORMATION
  Report Type: 
  Country: None (occurrence: None)
  Receive Date: 20040915
  Receipt Date: 20040831
  Transmission Date: 20050211
  Serious: Yes (Hospitalization)
  Sender: FDA-Public Use
  Company Number: 2004-BP-05595BP

PATIENT
  Age: 8 Year
  Sex: Female

DRUGS (3)
  1. CATAPRES [Suspect]
     Indication: ATTENTION DEFICIT/HYPERACTIVITY DISORDER
     Dosage: 0.2 MG (0.1 MG,1 TABLET BID), PO
     Route: 048
     Dates: end: 20040707
  2. OBETROL [Suspect]
     Indication: ATTENTION DEFICIT/HYPERACTIVITY DISORDER
     Dosage: NR (20 MG), NR
     Dates: end: 20040707
  3. SEREQUEL [Concomitant]

REACTIONS (2)
  - ELECTROCARDIOGRAM ABNORMAL [None]
  - PO2 DECREASED [None]
